FAERS Safety Report 24202762 (Version 2)
Quarter: 2024Q3

REPORT INFORMATION
  Report Type: Report from Study
  Country: US (occurrence: US)
  Receive Date: 20240813
  Receipt Date: 20240819
  Transmission Date: 20241017
  Serious: Yes (Other)
  Sender: LEO PHARM
  Company Number: US-LEO Pharma-372619

PATIENT
  Age: 66 Year
  Sex: Male

DRUGS (1)
  1. ADBRY [Suspect]
     Active Substance: TRALOKINUMAB-LDRM
     Indication: Dermatitis atopic
     Dosage: EXPIRY DATE WAS ASKED BUT UNKNOWN
     Dates: start: 20240521

REACTIONS (2)
  - Vision blurred [Unknown]
  - Cataract operation [Unknown]

NARRATIVE: CASE EVENT DATE: 20240701
